FAERS Safety Report 6283627-4 (Version None)
Quarter: 2009Q3

REPORT INFORMATION
  Report Type: 
  Country: None (occurrence: None)
  Receive Date: 20090724
  Receipt Date: 20090511
  Transmission Date: 20100115
  Serious: No
  Sender: FDA-Public Use
  Company Number: US-ALEXION-A200900385

PATIENT
  Sex: Female
  Weight: 60.771 kg

DRUGS (8)
  1. SOLIRIS [Suspect]
     Indication: PAROXYSMAL NOCTURNAL HAEMOGLOBINURIA
     Dosage: 600 MG, QW
     Route: 042
     Dates: start: 20070514, end: 20070604
  2. SOLIRIS [Suspect]
     Dosage: 900 MG, Q2W
     Route: 042
     Dates: start: 20070611
  3. FLONASE [Concomitant]
     Dosage: UNK
     Route: 048
  4. AMBIEN [Concomitant]
     Dosage: UNK
     Route: 048
  5. ORAL CONTRACEPTIVE NOS [Concomitant]
     Dosage: UNK
     Route: 048
  6. IRON [Concomitant]
     Dosage: UNK
     Route: 048
  7. FOLIC ACID [Concomitant]
     Dosage: UNK
     Route: 048
  8. MULTIVITAMIN                       /00831701/ [Concomitant]
     Dosage: UNK
     Route: 048

REACTIONS (5)
  - ABDOMINAL PAIN UPPER [None]
  - AMENORRHOEA [None]
  - HAEMOGLOBIN DECREASED [None]
  - INFLUENZA [None]
  - UPPER RESPIRATORY TRACT INFECTION [None]
